FAERS Safety Report 15127196 (Version 3)
Quarter: 2018Q4

REPORT INFORMATION
  Report Type: Report from Study
  Country: DE (occurrence: DE)
  Receive Date: 20180710
  Receipt Date: 20181120
  Transmission Date: 20190204
  Serious: Yes (Other)
  Sender: FDA-Public Use
  Company Number: DE-BAXTER-2018BAX009639

PATIENT
  Age: 67 Year
  Sex: Female
  Weight: 76 kg

DRUGS (53)
  1. RIXIMYO [Suspect]
     Active Substance: RITUXIMAB
     Indication: PRODUCT USED FOR UNKNOWN INDICATION
     Dosage: 724 MG, (INFUSION TIME 10:40 TO 13:50)
     Route: 041
     Dates: start: 20180314, end: 20180314
  2. RIXIMYO [Suspect]
     Active Substance: RITUXIMAB
     Dosage: 709 MG
     Route: 041
     Dates: start: 20180821, end: 20180821
  3. VINCRISTINE [Suspect]
     Active Substance: VINCRISTINE
     Dosage: 2 MG, (INFUSION TIME 10:30-10:32)
     Route: 041
     Dates: start: 20180329, end: 20180329
  4. IVEMEND [Concomitant]
     Active Substance: FOSAPREPITANT DIMEGLUMINE
     Indication: PROPHYLAXIS
     Dosage: 150 MG, UNK
     Route: 042
     Dates: start: 20180301
  5. NEULASTA [Concomitant]
     Active Substance: PEGFILGRASTIM
     Indication: PRODUCT USED FOR UNKNOWN INDICATION
     Dosage: UNK
     Route: 042
     Dates: start: 20180301
  6. MIRTAZPEN [Concomitant]
     Indication: PRODUCT USED FOR UNKNOWN INDICATION
     Dosage: 15 MG, QD
     Route: 048
     Dates: start: 20180205
  7. MOVICOL [Concomitant]
     Active Substance: POLYETHYLENE GLYCOL 3350\POTASSIUM CHLORIDE\SODIUM BICARBONATE\SODIUM CHLORIDE
     Indication: PROPHYLAXIS
     Dosage: UNK
     Route: 048
     Dates: start: 20180310, end: 20180314
  8. ENDOXAN 1G [Suspect]
     Active Substance: CYCLOPHOSPHAMIDE
     Dosage: 1448 MG, (INFUSION TIME 11:45-13:15)
     Route: 041
     Dates: start: 20180329, end: 20180329
  9. VINCRISTINE [Suspect]
     Active Substance: VINCRISTINE
     Indication: DIFFUSE LARGE B-CELL LYMPHOMA
     Dosage: 2 MG, UNK
     Route: 041
     Dates: start: 20180301, end: 20180301
  10. VINCRISTINE [Suspect]
     Active Substance: VINCRISTINE
     Dosage: 2 MG, (INFUSION TIME 10:15-10:17)
     Route: 041
     Dates: start: 20180509, end: 20180509
  11. DOXORUBICIN [Suspect]
     Active Substance: DOXORUBICIN
     Dosage: 94.5 MG, (INFUSION TIME 09:10-09:35)
     Route: 041
     Dates: start: 20180426, end: 20180426
  12. PREDNISONE. [Suspect]
     Active Substance: PREDNISONE
     Dosage: 4 MG, UNK
     Route: 048
     Dates: start: 20180328, end: 20180328
  13. PREDNISONE. [Suspect]
     Active Substance: PREDNISONE
     Dosage: 4 MG, UNK
     Route: 048
     Dates: start: 20180228, end: 20180228
  14. PREDNISONE. [Suspect]
     Active Substance: PREDNISONE
     Dosage: 4 MG, UNK
     Route: 048
     Dates: start: 20180508, end: 20180508
  15. RIXIMYO [Suspect]
     Active Substance: RITUXIMAB
     Dosage: 709 MG, (INFUSION TIME 09:25-12:25)
     Route: 041
     Dates: start: 20180508, end: 20180508
  16. PREDNISONE. [Suspect]
     Active Substance: PREDNISONE
     Indication: DIFFUSE LARGE B-CELL LYMPHOMA
     Dosage: 200 MG, UNK
     Route: 048
     Dates: start: 20180315, end: 20180319
  17. PREDNISONE. [Suspect]
     Active Substance: PREDNISONE
     Dosage: 4 MG, UNK
     Route: 048
     Dates: start: 20180314, end: 20180314
  18. PREDNISONE. [Suspect]
     Active Substance: PREDNISONE
     Dosage: 4 MG, UNK
     Route: 048
     Dates: start: 20180821, end: 20180821
  19. COTRIM [Concomitant]
     Active Substance: SULFAMETHOXAZOLE\TRIMETHOPRIM
     Indication: PROPHYLAXIS
     Dosage: UNK
     Route: 048
     Dates: start: 20180221
  20. EMEND [Concomitant]
     Active Substance: APREPITANT
     Indication: PROPHYLAXIS
     Dosage: 80 MG, UNK
     Route: 048
     Dates: start: 20180301
  21. RIXIMYO [Suspect]
     Active Substance: RITUXIMAB
     Dosage: 724 MG, UNK
     Route: 041
     Dates: start: 20180328, end: 20180328
  22. RIXIMYO [Suspect]
     Active Substance: RITUXIMAB
     Dosage: 709 MG, (INFUSION TIME 8:55-11:45)
     Route: 041
     Dates: start: 20180529, end: 20180529
  23. DOXORUBICIN [Suspect]
     Active Substance: DOXORUBICIN
     Indication: DIFFUSE LARGE B-CELL LYMPHOMA
     Dosage: 96.5 MG, UNK
     Route: 041
     Dates: start: 20180301, end: 20180301
  24. DOXORUBICIN [Suspect]
     Active Substance: DOXORUBICIN
     Indication: PRODUCT USED FOR UNKNOWN INDICATION
     Dosage: 96.5 MG, (INFUSION TIME 11:55-12:15)
     Route: 041
     Dates: start: 20180315, end: 20180315
  25. DOXORUBICIN [Suspect]
     Active Substance: DOXORUBICIN
     Dosage: 96.5 MG, (INFUSION TIME 10:45-11:15)
     Route: 041
     Dates: start: 20180329, end: 20180329
  26. PREDNISONE. [Suspect]
     Active Substance: PREDNISONE
     Dosage: 4 MG, UNK
     Route: 048
     Dates: start: 20180529, end: 20180529
  27. PREDNISONE. [Suspect]
     Active Substance: PREDNISONE
     Dosage: 500 MG, UNK
     Route: 048
     Dates: start: 20180301, end: 20180305
  28. ENDOXAN 1G [Suspect]
     Active Substance: CYCLOPHOSPHAMIDE
     Indication: DIFFUSE LARGE B-CELL LYMPHOMA
     Dosage: 1448 MG, UNK
     Route: 041
     Dates: start: 20180301, end: 20180301
  29. VINCRISTINE [Suspect]
     Active Substance: VINCRISTINE
     Dosage: 2 MG, (INFUSION TIME 08:50-08:52)
     Route: 041
     Dates: start: 20180426, end: 20180426
  30. PREDNISONE. [Suspect]
     Active Substance: PREDNISONE
     Indication: PRODUCT USED FOR UNKNOWN INDICATION
     Dosage: 4 MG, UNK
     Route: 048
     Dates: start: 20180619, end: 20180619
  31. PANTOZOL [Concomitant]
     Active Substance: PANTOPRAZOLE SODIUM
     Indication: PROPHYLAXIS
     Dosage: 20 MG, UNK
     Route: 048
     Dates: start: 20180221
  32. DEKRISTOL [Concomitant]
     Active Substance: CHOLECALCIFEROL
     Indication: VITAMIN D DEFICIENCY
     Dosage: UNK
     Route: 048
     Dates: start: 20180221
  33. RIXIMYO [Suspect]
     Active Substance: RITUXIMAB
     Route: 041
     Dates: start: 20180425, end: 20180425
  34. VINCRISTINE [Suspect]
     Active Substance: VINCRISTINE
     Dosage: 2 MG, (INFUSION TIME 09:25-09:27)
     Route: 041
     Dates: start: 20180412, end: 20180412
  35. PREDNISONE. [Suspect]
     Active Substance: PREDNISONE
     Dosage: 4 MG, UNK
     Route: 048
     Dates: start: 20180425, end: 20180425
  36. GRANISETRON [Concomitant]
     Active Substance: GRANISETRON
     Indication: PROPHYLAXIS
     Dosage: 1 MG, UNK
     Route: 048
     Dates: start: 20180228
  37. UROMITEXAN [Concomitant]
     Active Substance: MESNA
     Indication: PROPHYLAXIS
     Dosage: 600 MG, UNK
     Route: 048
     Dates: start: 20180301
  38. VENLAFAXIN [Concomitant]
     Active Substance: VENLAFAXINE HYDROCHLORIDE
     Indication: PRODUCT USED FOR UNKNOWN INDICATION
     Dosage: 75 MG, QD
     Route: 048
     Dates: start: 20180205
  39. ENDOXAN 1G [Suspect]
     Active Substance: CYCLOPHOSPHAMIDE
     Dosage: 1417.5 MG, (INFUSION TIME 10:45-11:45)
     Route: 041
     Dates: start: 20180412, end: 20180412
  40. RIXIMYO [Suspect]
     Active Substance: RITUXIMAB
     Indication: DIFFUSE LARGE B-CELL LYMPHOMA
     Dosage: 724 MG, UNK
     Route: 041
     Dates: start: 20180228, end: 20180228
  41. RIXIMYO [Suspect]
     Active Substance: RITUXIMAB
     Dosage: 709 MG
     Route: 041
     Dates: start: 20180619, end: 20180619
  42. VINCRISTINE [Suspect]
     Active Substance: VINCRISTINE
     Dosage: 2 MG, (INFUSION TIME 11:30 TO 11:32)
     Route: 041
     Dates: start: 20180315, end: 20180315
  43. DOXORUBICIN [Suspect]
     Active Substance: DOXORUBICIN
     Dosage: 96.5 MG, (INFUSION TIME 10:30-10:55)
     Route: 041
     Dates: start: 20180509, end: 20180509
  44. DOXORUBICIN [Suspect]
     Active Substance: DOXORUBICIN
     Dosage: 94.5 MG, (INFUSION TIME 09:45-10:10)
     Route: 041
     Dates: start: 20180412, end: 20180412
  45. ALLOPURINOL. [Concomitant]
     Active Substance: ALLOPURINOL
     Indication: PROPHYLAXIS
     Dosage: UNK
     Route: 048
     Dates: start: 20180221
  46. SOLU DECORTIN [Concomitant]
     Active Substance: PREDNISOLONE SODIUM SUCCINATE
     Indication: PROPHYLAXIS
     Dosage: UNK
     Route: 042
     Dates: start: 20180228
  47. ENDOXAN 1G [Suspect]
     Active Substance: CYCLOPHOSPHAMIDE
     Indication: PRODUCT USED FOR UNKNOWN INDICATION
     Dosage: 1448 MG, (INFUSION TIME 12:35 TO 14:10)
     Route: 041
     Dates: start: 20180315, end: 20180315
  48. ENDOXAN 1G [Suspect]
     Active Substance: CYCLOPHOSPHAMIDE
     Dosage: 1417.5 MG, (INFUSION TIME 10:05-11:35)
     Route: 041
     Dates: start: 20180426, end: 20180426
  49. ENDOXAN 1G [Suspect]
     Active Substance: CYCLOPHOSPHAMIDE
     Dosage: 1417.5 MG, (INFUSION TIME 11:30-12:45)
     Route: 041
     Dates: start: 20180509, end: 20180509
  50. RIXIMYO [Suspect]
     Active Substance: RITUXIMAB
     Dosage: 709 MG, (INFUSION TIME 10:30 TO 13:30)
     Route: 041
     Dates: start: 20180411, end: 20180411
  51. PREDNISONE. [Suspect]
     Active Substance: PREDNISONE
     Dosage: 4 MG, UNK
     Route: 048
     Dates: start: 20180411, end: 20180411
  52. PREDNISONE. [Suspect]
     Active Substance: PREDNISONE
     Dosage: 4 MG, UNK
     Route: 048
  53. TAVEGIL [Concomitant]
     Active Substance: CLEMASTINE FUMARATE
     Indication: PROPHYLAXIS
     Dosage: 5X2ML
     Route: 048
     Dates: start: 20180228

REACTIONS (15)
  - Oral pain [Recovered/Resolved]
  - Dyspepsia [Recovered/Resolved]
  - Oral pain [Recovered/Resolved]
  - Anaemia [Recovered/Resolved]
  - Neutropenia [Recovered/Resolved]
  - Erythema [Recovered/Resolved]
  - Dysphagia [Recovered/Resolved]
  - Neutropenia [Recovered/Resolved]
  - Constipation [Recovered/Resolved]
  - Neutropenia [Recovered/Resolved]
  - Dizziness [Not Recovered/Not Resolved]
  - Nasopharyngitis [Recovered/Resolved]
  - Oral candidiasis [Recovered/Resolved]
  - Anaemia [Recovered/Resolved]
  - Nausea [Not Recovered/Not Resolved]

NARRATIVE: CASE EVENT DATE: 20180310
